FAERS Safety Report 7052874-6 (Version None)
Quarter: 2010Q4

REPORT INFORMATION
  Report Type: 
  Country: None (occurrence: None)
  Receive Date: 20101020
  Receipt Date: 20101008
  Transmission Date: 20110411
  Serious: Yes (Other)
  Sender: FDA-Public Use
  Company Number: RO-BIOGENIDEC-2010BI033085

PATIENT
  Age: 30 Year
  Sex: Female
  Weight: 52 kg

DRUGS (4)
  1. TYSABRI [Suspect]
     Indication: MULTIPLE SCLEROSIS
     Route: 042
     Dates: start: 20100616, end: 20100911
  2. SOLU-MEDROL [Concomitant]
     Indication: MULTIPLE SCLEROSIS RELAPSE
     Route: 042
     Dates: start: 20100915, end: 20100919
  3. ARNETIN [Concomitant]
     Indication: PROPHYLAXIS
     Route: 042
     Dates: start: 20100915, end: 20100919
  4. PRAMIRACETAM [Concomitant]

REACTIONS (2)
  - COMPLEX PARTIAL SEIZURES [None]
  - MULTIPLE SCLEROSIS RELAPSE [None]
